FAERS Safety Report 9502700 (Version 1)
Quarter: 2013Q3

REPORT INFORMATION
  Report Type: Spontaneous
  Country: US (occurrence: US)
  Receive Date: 20130906
  Receipt Date: 20130906
  Transmission Date: 20140515
  Serious: No
  Sender: FDA-Public Use
  Company Number: US-BAYER-2013-107716

PATIENT
  Age: 86 Year
  Sex: Male
  Weight: 79 kg

DRUGS (5)
  1. ALEVE CAPLET [Suspect]
     Indication: ARTHRITIS
     Dosage: 1 DF, BID
     Route: 048
     Dates: start: 201203
  2. WARFARIN [Concomitant]
  3. SIMVASTATIN [Concomitant]
  4. ALPRAZOLAM [Concomitant]
  5. METOPROLOL [Concomitant]

REACTIONS (1)
  - Incorrect drug administration duration [None]
